FAERS Safety Report 5287002-0 (Version None)
Quarter: 2007Q2

REPORT INFORMATION
  Report Type: 
  Country: None (occurrence: None)
  Receive Date: 20070404
  Receipt Date: 20070327
  Transmission Date: 20071010
  Serious: Yes (Other)
  Sender: FDA-Public Use
  Company Number: NL-PFIZER INC-2007024760

PATIENT
  Sex: Female
  Weight: 100 kg

DRUGS (4)
  1. LIPITOR [Suspect]
     Indication: HYPERCHOLESTEROLAEMIA
     Route: 048
  2. METOPROLOL SUCCINATE [Concomitant]
     Route: 048
  3. METFORMIN HCL [Concomitant]
     Route: 048
     Dates: start: 20040101
  4. ENALAPRIL MALEATE [Concomitant]
     Route: 048
     Dates: start: 19980101

REACTIONS (3)
  - AMNESIA [None]
  - CHILLS [None]
  - MUSCULOSKELETAL PAIN [None]
